FAERS Safety Report 6630945-3 (Version None)
Quarter: 2010Q1

REPORT INFORMATION
  Report Type: 
  Country: None (occurrence: None)
  Receive Date: 20100309
  Receipt Date: 20100309
  Transmission Date: 20100710
  Serious: Yes (Death, Hospitalization)
  Sender: FDA-Public Use
  Company Number: DSA_42116_2009

PATIENT
  Sex: Female

DRUGS (9)
  1. XENAZINE [Suspect]
     Indication: HUNTINGTON'S CHOREA
     Dosage: (25 MG BID ORAL)
     Route: 048
     Dates: start: 20090201
  2. EFFEXOR [Concomitant]
  3. LIPITOR [Concomitant]
  4. AMANTADINE HCL [Concomitant]
  5. LASIX [Concomitant]
  6. MEGACE [Concomitant]
  7. POTASSIUM [Concomitant]
  8. ZYPREXA [Concomitant]
  9. WELLBUTRIN [Concomitant]

REACTIONS (5)
  - AGGRESSION [None]
  - CONVULSION [None]
  - FAILURE TO THRIVE [None]
  - HALLUCINATION [None]
  - PNEUMONIA ASPIRATION [None]
